FAERS Safety Report 8598454-2 (Version None)
Quarter: 2012Q3

REPORT INFORMATION
  Report Type: 
  Country: None (occurrence: None)
  Receive Date: 20120816
  Receipt Date: 20120809
  Transmission Date: 20120928
  Serious: Yes (Hospitalization, Other)
  Sender: FDA-Public Use
  Company Number: DE-ROCHE-1077394

PATIENT
  Age: 15 Year
  Sex: Female
  Weight: 89 kg

DRUGS (4)
  1. XOLAIR [Suspect]
     Indication: ASTHMA
     Route: 058
     Dates: start: 20090101, end: 20120605
  2. FLUTICASONE PROPIONATE/SALMETEROL [Concomitant]
  3. SALBUTAMOL SPRAY [Concomitant]
  4. XOLAIR [Suspect]
     Dates: start: 20120605

REACTIONS (1)
  - ANAPHYLACTIC REACTION [None]
